FAERS Safety Report 17895378 (Version 1)
Quarter: 2020Q2

REPORT INFORMATION
  Report Type: Spontaneous
  Country: CN (occurrence: CN)
  Receive Date: 20200615
  Receipt Date: 20200615
  Transmission Date: 20200714
  Serious: Yes (Other)
  Sender: FDA-Public Use
  Company Number: CN-BAYER-2020-115402

PATIENT
  Age: 50 Year
  Sex: Female

DRUGS (2)
  1. STIVARGA [Suspect]
     Active Substance: REGORAFENIB
     Indication: GASTROINTESTINAL CARCINOMA
     Dosage: 80 MG, QD
     Route: 048
     Dates: end: 202001
  2. STIVARGA [Suspect]
     Active Substance: REGORAFENIB
     Indication: GASTROINTESTINAL CARCINOMA
     Dosage: UNK
     Route: 048
     Dates: start: 201903

REACTIONS (4)
  - Palmar-plantar erythrodysaesthesia syndrome [None]
  - Hypertension [None]
  - Asthenia [None]
  - Hyperthyroidism [None]

NARRATIVE: CASE EVENT DATE: 20190405
